FAERS Safety Report 5220832-X (Version None)
Quarter: 2007Q1

REPORT INFORMATION
  Report Type: 
  Country: None (occurrence: None)
  Receive Date: 20070126
  Receipt Date: 20070118
  Transmission Date: 20070707
  Serious: Yes (Hospitalization)
  Sender: FDA-Public Use
  Company Number: DE-AMGEN-UK197483

PATIENT

DRUGS (4)
  1. ARANESP [Suspect]
     Indication: ANAEMIA OF MALIGNANT DISEASE
     Route: 058
     Dates: start: 20050816
  2. DOCETAXEL [Concomitant]
     Route: 042
     Dates: start: 20050816
  3. ADRIAMYCIN PFS [Concomitant]
     Route: 042
     Dates: start: 20050816
  4. CYCLOPHOSPHAMIDE [Concomitant]
     Route: 042
     Dates: start: 20050816

REACTIONS (2)
  - ABDOMINAL PAIN [None]
  - BONE PAIN [None]
